FAERS Safety Report 7488854-6 (Version None)
Quarter: 2011Q2

REPORT INFORMATION
  Report Type: 
  Country: None (occurrence: None)
  Receive Date: 20110511
  Receipt Date: 20110426
  Transmission Date: 20111010
  Serious: Yes (Other)
  Sender: FDA-Public Use
  Company Number: AE 2011-188

PATIENT
  Age: 54 Year
  Sex: Male

DRUGS (3)
  1. TRIFLUOPERAZINE HCL [Concomitant]
  2. ^STATIN^ [Concomitant]
  3. FAZACLO ODT [Suspect]
     Indication: SCHIZOPHRENIA
     Dosage: 400 MG DAILY PO
     Route: 048
     Dates: start: 20041006

REACTIONS (1)
  - LEUKAEMIA [None]
